FAERS Safety Report 4626126-5 (Version None)
Quarter: 2005Q1

REPORT INFORMATION
  Report Type: 
  Country: None (occurrence: None)
  Receive Date: 20050330
  Receipt Date: 20050317
  Transmission Date: 20050727
  Serious: Yes (Hospitalization, Disabling, Other)
  Sender: FDA-Public Use
  Company Number: 2005046756

PATIENT
  Age: 60 Year
  Sex: Male
  Weight: 83.9154 kg

DRUGS (2)
  1. ZOLOFT [Suspect]
     Indication: ANXIETY
     Dosage: 75 MG (50 MG, 1 D), ORAL
     Route: 048
     Dates: start: 20040101
  2. SAW PALMETTO (SAW PALMETTO) [Suspect]
     Indication: ILL-DEFINED DISORDER

REACTIONS (7)
  - AGEUSIA [None]
  - CAROTID ARTERY DISSECTION [None]
  - DRUG INEFFECTIVE [None]
  - EYELID PTOSIS [None]
  - HEADACHE [None]
  - HEART RATE INCREASED [None]
  - HORNER'S SYNDROME [None]
